FAERS Safety Report 8970730 (Version 3)
Quarter: 2013Q1

REPORT INFORMATION
  Report Type: Report from Study
  Country: US (occurrence: US)
  Receive Date: 20121217
  Receipt Date: 20130329
  Transmission Date: 20140127
  Serious: Yes (Other)
  Sender: FDA-Public Use
  Company Number: US-ABBOTT-12P-163-1019581-00

PATIENT
  Sex: Male
  Weight: 74.68 kg

DRUGS (3)
  1. HUMIRA PEN [Suspect]
     Indication: CROHN^S DISEASE
     Dates: start: 20121128
  2. AZATHIOPRINE [Suspect]
     Indication: PRODUCT USED FOR UNKNOWN INDICATION
     Dates: start: 20120926
  3. PREDNISONE [Concomitant]
     Indication: PRODUCT USED FOR UNKNOWN INDICATION
     Dates: start: 20120523

REACTIONS (2)
  - Testis cancer [Recovering/Resolving]
  - Gastrointestinal stenosis [Recovering/Resolving]
